FAERS Safety Report 16727543 (Version 1)
Quarter: 2019Q3

REPORT INFORMATION
  Report Type: Report from Study
  Country: None (occurrence: US)
  Receive Date: 20190822
  Receipt Date: 20190822
  Transmission Date: 20191005
  Serious: Yes (Hospitalization, Other)
  Sender: FDA-Public Use
  Company Number: US-ABBVIE-19K-163-2885812-00

PATIENT
  Age: 59 Year
  Sex: Female
  Weight: 45.85 kg

DRUGS (2)
  1. HUMIRA [Suspect]
     Active Substance: ADALIMUMAB
     Indication: RHEUMATOID ARTHRITIS
     Route: 058
     Dates: start: 2017, end: 201905
  2. HUMIRA [Suspect]
     Active Substance: ADALIMUMAB
     Route: 058
     Dates: start: 20190730

REACTIONS (10)
  - Weight decreased [Not Recovered/Not Resolved]
  - Abdominal pain [Recovering/Resolving]
  - Immunodeficiency [Recovered/Resolved]
  - Influenza [Recovered/Resolved]
  - Malaise [Unknown]
  - Volvulus [Recovering/Resolving]
  - Gastrointestinal disorder [Recovering/Resolving]
  - Vomiting [Recovering/Resolving]
  - Dehydration [Recovering/Resolving]
  - Osteoporosis [Recovering/Resolving]

NARRATIVE: CASE EVENT DATE: 2018
